FAERS Safety Report 4466639-2 (Version None)
Quarter: 2004Q4

REPORT INFORMATION
  Report Type: 
  Country: None (occurrence: None)
  Receive Date: 20041001
  Receipt Date: 20041001
  Transmission Date: 20050328
  Serious: Yes (Life-Threatening, Hospitalization, Other)
  Sender: FDA-Public Use
  Company Number: None

PATIENT
  Age: 46 Year
  Sex: Male
  Weight: 127.0072 kg

DRUGS (1)
  1. VIOXX [Suspect]
     Indication: INFLAMMATION
     Dosage: ONE A DAY ORAL
     Route: 048
     Dates: start: 20030815, end: 20030822

REACTIONS (3)
  - CARDIAC FAILURE CONGESTIVE [None]
  - CARDIAC OPERATION [None]
  - PULMONARY OEDEMA [None]
